FAERS Safety Report 12091076 (Version 1)
Quarter: 2016Q1

REPORT INFORMATION
  Report Type: Spontaneous
  Country: CA (occurrence: CA)
  Receive Date: 20160218
  Receipt Date: 20160218
  Transmission Date: 20160526
  Serious: Yes (Death)
  Sender: FDA-Public Use
  Company Number: CA-PFIZER INC-2016098084

PATIENT
  Age: 34 Year
  Sex: Female
  Weight: 81 kg

DRUGS (2)
  1. LABETALOL [Concomitant]
     Active Substance: LABETALOL\LABETALOL HYDROCHLORIDE
     Dosage: UNK
  2. PROSTIN E2 [Suspect]
     Active Substance: DINOPROSTONE
     Indication: INDUCTION OF CERVIX RIPENING
     Dosage: 2 MG, SINGLE (IN TOTAL)
     Route: 067

REACTIONS (7)
  - Hypertension [Fatal]
  - Cough [Fatal]
  - Condition aggravated [Fatal]
  - Resuscitation [Fatal]
  - Dyspnoea [Fatal]
  - Respiratory distress [Fatal]
  - Restlessness [Fatal]
